FAERS Safety Report 14240990 (Version 2)
Quarter: 2017Q4

REPORT INFORMATION
  Report Type: Spontaneous
  Country: US (occurrence: US)
  Receive Date: 20171130
  Receipt Date: 20171218
  Transmission Date: 20180321
  Serious: Yes (Other)
  Sender: FDA-Public Use
  Company Number: US-ALLERGAN-1768411US

PATIENT
  Age: 18 Year
  Sex: Female

DRUGS (1)
  1. LILETTA [Suspect]
     Active Substance: LEVONORGESTREL
     Indication: PRODUCT USED FOR UNKNOWN INDICATION
     Dosage: 52 MG, SINGLE
     Route: 015
     Dates: start: 20171003

REACTIONS (3)
  - Uterine spasm [Unknown]
  - Uterine perforation [Not Recovered/Not Resolved]
  - Uterine haemorrhage [Unknown]

NARRATIVE: CASE EVENT DATE: 201710
